FAERS Safety Report 8118395-4 (Version None)
Quarter: 2012Q1

REPORT INFORMATION
  Report Type: 
  Country: None (occurrence: None)
  Receive Date: 20120201
  Receipt Date: 20120124
  Transmission Date: 20120608
  Serious: Yes (Other)
  Sender: FDA-Public Use
  Company Number: AUR-APL-2012-00624

PATIENT
  Age: 67 Year
  Sex: Female
  Weight: 45.5 kg

DRUGS (25)
  1. FOLIC ACID [Concomitant]
  2. LOSARTAN POTASSIUM [Concomitant]
  3. DIAZEPAM [Concomitant]
  4. FERROUS SULFATE TAB [Concomitant]
  5. MORPHINE SULFATE [Concomitant]
  6. ASCORBIC ACID [Concomitant]
  7. RELAXIT (RELAXIT) [Concomitant]
  8. ATENOLOL [Concomitant]
  9. CANDESARTAN CILEXETIL [Concomitant]
  10. CITALOPRAM HYDROBROMIDE [Concomitant]
  11. ACETAMINOPHEN [Concomitant]
  12. MIRTAZAPINE [Suspect]
     Indication: PRODUCT USED FOR UNKNOWN INDICATION
     Dosage: ORAL
     Route: 048
     Dates: start: 20120113
  13. AMOXICILLIN [Concomitant]
  14. CORSODYL (CHLORHEXIDINE GLUCONATE) [Concomitant]
  15. CYCLIZINE (CYCLIZINE) [Concomitant]
  16. FLOXACILLIN SODIUM [Concomitant]
  17. FUROSEMIDE [Concomitant]
  18. BACLOFEN [Concomitant]
  19. HYDROCORTONE [Concomitant]
  20. ESSOMEPRAZOLE (ESOMEPRAZOLE) [Concomitant]
  21. DICLOFENAC SODIUM [Concomitant]
  22. ADCAL (CARBAZOCHROME) [Concomitant]
  23. LAXIDO (MACROGOL 3350) [Concomitant]
  24. ARANITIDINE (RANITIDINE) [Concomitant]
  25. TRIMETHOPRIM [Concomitant]

REACTIONS (2)
  - SWELLING FACE [None]
  - LIP SWELLING [None]
